FAERS Safety Report 21839324 (Version 1)
Quarter: 2023Q1

REPORT INFORMATION
  Report Type: Spontaneous
  Country: BR (occurrence: BR)
  Receive Date: 20230109
  Receipt Date: 20230109
  Transmission Date: 20230417
  Serious: Yes (Hospitalization)
  Sender: FDA-Public Use
  Company Number: BR-ABBOTT-2022A-1357875

PATIENT
  Sex: Male

DRUGS (1)
  1. DEPAKENE [Suspect]
     Active Substance: VALPROIC ACID
     Indication: Sleep disorder therapy
     Dosage: USES WHEN NECESSARY
     Route: 065

REACTIONS (6)
  - Pain [Unknown]
  - Contraindicated product prescribed [Unknown]
  - Off label use [Unknown]
  - Feeling abnormal [Unknown]
  - Insomnia [Unknown]
  - Cardiovascular disorder [Unknown]
